FAERS Safety Report 12394173 (Version 1)
Quarter: 2016Q2

REPORT INFORMATION
  Report Type: Spontaneous
  Country: DE (occurrence: DE)
  Receive Date: 20160523
  Receipt Date: 20160523
  Transmission Date: 20160815
  Serious: Yes (Hospitalization, Other)
  Sender: FDA-Public Use
  Company Number: DE-SA-2016SA084751

PATIENT
  Age: 30 Year
  Sex: Female
  Weight: 60 kg

DRUGS (2)
  1. AUBAGIO [Suspect]
     Active Substance: TERIFLUNOMIDE
     Indication: MULTIPLE SCLEROSIS
     Route: 048
     Dates: start: 20150304, end: 20150313
  2. AUBAGIO [Suspect]
     Active Substance: TERIFLUNOMIDE
     Indication: ENCEPHALITIS
     Route: 048
     Dates: start: 20150304, end: 20150313

REACTIONS (11)
  - Depressed mood [Unknown]
  - Suicidal ideation [Unknown]
  - Relapsing-remitting multiple sclerosis [Unknown]
  - JC virus test positive [Unknown]
  - Dizziness [Recovered/Resolved]
  - Lymphopenia [Not Recovered/Not Resolved]
  - Nausea [Recovered/Resolved]
  - Hypoaesthesia [Unknown]
  - Vitamin D decreased [Unknown]
  - Paraesthesia [Recovered/Resolved]
  - Musculoskeletal pain [Unknown]

NARRATIVE: CASE EVENT DATE: 20150304
